FAERS Safety Report 9283090 (Version 1)
Quarter: 2013Q2

REPORT INFORMATION
  Report Type: Spontaneous
  Country: US (occurrence: US)
  Receive Date: 20130510
  Receipt Date: 20130510
  Transmission Date: 20140414
  Serious: No
  Sender: FDA-Public Use
  Company Number: US-GLAXOSMITHKLINE-A0979668A

PATIENT
  Age: 59 Year
  Sex: Female
  Weight: 59.5 kg

DRUGS (9)
  1. TYKERB [Suspect]
     Indication: BREAST CANCER
     Dosage: 1000MG PER DAY
     Dates: start: 20120524, end: 20120525
  2. HERCEPTIN [Concomitant]
  3. ACTONEL [Concomitant]
  4. FISH OIL [Concomitant]
  5. LEVOTHYROXINE [Concomitant]
  6. MELOXICAM [Concomitant]
  7. MVI [Concomitant]
  8. VITAMIN D [Concomitant]
  9. ZOLPIDEM [Concomitant]

REACTIONS (9)
  - Dyspnoea [Recovered/Resolved]
  - Diarrhoea [Recovered/Resolved]
  - Dyspnoea exertional [Unknown]
  - Hypersensitivity [Unknown]
  - Drug intolerance [Unknown]
  - Fatigue [Recovered/Resolved]
  - Nausea [Recovered/Resolved]
  - Vomiting [Recovered/Resolved]
  - Abdominal distension [Recovered/Resolved]
